FAERS Safety Report 8834037 (Version 1)
Quarter: 2012Q4

REPORT INFORMATION
  Report Type: 
  Country: US (occurrence: US)
  Receive Date: 20121010
  Receipt Date: 20121010
  Transmission Date: 20130627
  Serious: No
  Sender: FDA-Public Use
  Company Number: US-ASTRAZENECA-2012SE76098

PATIENT

DRUGS (1)
  1. NEXIUM [Suspect]
     Route: 048
     Dates: start: 2012

REACTIONS (3)
  - Dyspepsia [Unknown]
  - Drug ineffective [Unknown]
  - Therapeutic response unexpected [Unknown]
